APPROVED DRUG PRODUCT: VABOMERE
Active Ingredient: MEROPENEM; VABORBACTAM
Strength: 1GM/VIAL;1GM/VIAL
Dosage Form/Route: POWDER;INTRAVENOUS
Application: N209776 | Product #001
Applicant: REMPEX PHARMACEUTICALS INC A WHOLLY OWNED SUB OF MELINTA THERAPEUTICS LLC
Approved: Aug 29, 2017 | RLD: Yes | RS: Yes | Type: RX

PATENTS:
Patent 9694025 | Expires: Aug 8, 2031
Patent 12478606 | Expires: Jan 8, 2038
Patent 10561675 | Expires: Aug 8, 2031
Patent 11376237 | Expires: Apr 6, 2039
Patent 12533342 | Expires: May 20, 2039
Patent 10183034 | Expires: Aug 8, 2031
Patent 11007206 | Expires: Aug 8, 2031
Patent 12171772 | Expires: Aug 8, 2031
Patent 8680136 | Expires: Aug 29, 2031
Patent 10172874 | Expires: Aug 8, 2031

EXCLUSIVITY:
Code: NCE | Date: Aug 29, 2022
Code: GAIN | Date: Aug 29, 2027